FAERS Safety Report 15169460 (Version 1)
Quarter: 2018Q4

REPORT INFORMATION
  Report Type: Spontaneous
  Country: IN (occurrence: IN)
  Receive Date: 20180720
  Receipt Date: 20180720
  Transmission Date: 20190204
  Serious: No
  Sender: FDA-Public Use
  Company Number: IN-LUPIN LIMITED-2018-02813

PATIENT
  Age: 67 Year
  Sex: Male

DRUGS (7)
  1. PEGALUP SOLUT. 100 ML [Suspect]
     Active Substance: POLYETHYLENE GLYCOL 3350\POTASSIUM CHLORIDE\SODIUM BICARBONATE\SODIUM CHLORIDE
     Indication: GASTRIC DISORDER
     Dosage: 2.5 ML IN 100 ML, QD
     Route: 048
     Dates: start: 20180325, end: 20180401
  2. RANOZEX [Concomitant]
     Indication: CARDIAC DISORDER
     Dosage: 1 DF, BID
     Route: 048
  3. TELMA [Concomitant]
     Active Substance: TELMISARTAN
     Indication: BLOOD PRESSURE ABNORMAL
     Dosage: 1 DF, QD
     Route: 048
  4. FLAVEDON [Concomitant]
     Indication: CARDIAC DISORDER
     Dosage: 1 DF, BID
     Route: 048
  5. MET XL [Concomitant]
     Indication: BLOOD PRESSURE ABNORMAL
     Dosage: 1 DF, QD
     Route: 048
  6. PEGALUP SOLUT. 100 ML [Suspect]
     Active Substance: POLYETHYLENE GLYCOL 3350\POTASSIUM CHLORIDE\SODIUM BICARBONATE\SODIUM CHLORIDE
     Indication: CONSTIPATION
  7. HUMSTARD [Concomitant]
     Indication: BLOOD GLUCOSE ABNORMAL
     Dosage: 20 UNIT, BID
     Route: 065

REACTIONS (2)
  - Blood glucose increased [Unknown]
  - Incorrect dose administered [Unknown]

NARRATIVE: CASE EVENT DATE: 20180325
